FAERS Safety Report 9126313 (Version 1)
Quarter: 2013Q1

REPORT INFORMATION
  Report Type: Spontaneous
  Country: US (occurrence: US)
  Receive Date: 20130228
  Receipt Date: 20130228
  Transmission Date: 20140127
  Serious: No
  Sender: FDA-Public Use
  Company Number: US-009507513-1302USA007681

PATIENT
  Sex: 0

DRUGS (9)
  1. LISINOPRIL [Suspect]
     Route: 048
  2. JANUMET [Concomitant]
     Route: 048
  3. COZAAR [Concomitant]
     Route: 048
  4. NAPROSYN [Concomitant]
     Dosage: UNK
     Route: 048
  5. NIACIN [Concomitant]
     Dosage: UNK
     Route: 048
  6. ASPIR-81 [Concomitant]
     Dosage: UNK
     Route: 048
  7. METFORMIN HYDROCHLORIDE [Concomitant]
     Dosage: UNK
     Route: 048
  8. JANUVIA [Concomitant]
     Dosage: UNK
     Route: 048
  9. NORVASC [Concomitant]
     Dosage: 1 DF, QD
     Route: 048

REACTIONS (2)
  - Drug hypersensitivity [Unknown]
  - Cough [Unknown]
